FAERS Safety Report 7959208-0 (Version None)
Quarter: 2011Q4

REPORT INFORMATION
  Report Type: 
  Country: None (occurrence: None)
  Receive Date: 20111206
  Receipt Date: 20111201
  Transmission Date: 20120403
  Serious: Yes (Death)
  Sender: FDA-Public Use
  Company Number: US-PFIZER INC-2011293434

PATIENT
  Sex: Male

DRUGS (1)
  1. XALKORI [Suspect]
     Indication: TRACHEAL NEOPLASM
     Dosage: 250, 2X/DAY
     Route: 048
     Dates: start: 20111003

REACTIONS (1)
  - DEATH [None]
